FAERS Safety Report 22139417 (Version 1)
Quarter: 2023Q1

REPORT INFORMATION
  Report Type: Report from Study
  Country: US (occurrence: US)
  Receive Date: 20230327
  Receipt Date: 20230327
  Transmission Date: 20230418
  Serious: Yes (Hospitalization)
  Sender: FDA-Public Use
  Company Number: US-ABBVIE-4705216

PATIENT
  Sex: Male

DRUGS (2)
  1. SKYRIZI [Suspect]
     Active Substance: RISANKIZUMAB-RZAA
     Indication: Rheumatoid arthritis
     Dosage: FORM STRENGTH 150 MILLIGRAM, WEEK 0
     Route: 058
     Dates: start: 20230222, end: 20230222
  2. SKYRIZI [Suspect]
     Active Substance: RISANKIZUMAB-RZAA
     Indication: Psoriasis

REACTIONS (1)
  - Psoriatic arthropathy [Unknown]
